FAERS Safety Report 7622911-6 (Version None)
Quarter: 2011Q3

REPORT INFORMATION
  Report Type: 
  Country: None (occurrence: None)
  Receive Date: 20110720
  Receipt Date: 20110711
  Transmission Date: 20111222
  Serious: Yes (Hospitalization, Other)
  Sender: FDA-Public Use
  Company Number: US-BAYER-201040032NA

PATIENT
  Age: 21 Year
  Sex: Female
  Weight: 72.562 kg

DRUGS (27)
  1. ATIVAN [Concomitant]
     Dosage: 1 MG, UNK
     Route: 048
  2. LORAZEPAM [Concomitant]
     Dosage: 0.5 MG, PRN
     Route: 048
     Dates: start: 20060119
  3. GABAPENTIN [Concomitant]
     Dosage: 300 MG, TID
     Dates: start: 20060327
  4. NORCO [Concomitant]
     Dosage: UNK
     Route: 048
     Dates: start: 20060101
  5. TRAMADOL HCL [Concomitant]
     Dosage: 50 MG, QID
     Route: 048
     Dates: start: 20060121
  6. METROGEL [Concomitant]
     Dosage: 0.75 %, QD
     Route: 067
     Dates: start: 20060212
  7. OXYCONTIN [Concomitant]
     Dosage: 20 MG, BID
     Route: 048
     Dates: start: 20060106
  8. ZOLOFT [Concomitant]
     Dosage: 50 MG, QD
     Route: 048
     Dates: start: 20060106
  9. NITROFURANTOIN [Concomitant]
     Dosage: 100 MG, QD
     Route: 048
     Dates: start: 20060212
  10. FOLIC ACID [Concomitant]
     Indication: ANAEMIA
     Dosage: 1 MG, UNK
     Dates: start: 20060401
  11. HYDROXYZINE HCL [Concomitant]
     Indication: PRURITUS
     Dosage: 25 MG, Q6WK
     Route: 048
     Dates: start: 20060401
  12. YASMIN [Suspect]
     Dosage: UNK
     Dates: start: 20060220, end: 20060820
  13. HYDROCODONE [Concomitant]
     Indication: PAIN
     Dosage: 5 MG, UNK
     Dates: start: 20051024
  14. VICODIN [Concomitant]
     Dosage: UNK UNK, PRN
  15. ACYCLOVIR [Concomitant]
     Dosage: 400 MG, BID
     Route: 048
     Dates: start: 20060103
  16. DURAGESIC-100 [Concomitant]
     Dosage: 8.3 UNK, UNK
     Route: 061
     Dates: start: 20060105
  17. FLUCONAZOLE [Concomitant]
     Dosage: 100 MG, QD
     Route: 048
     Dates: start: 20060106, end: 20060109
  18. FAMOTIDINE [Concomitant]
     Dosage: 20 MG, BID
     Route: 048
     Dates: start: 20060401
  19. IBUPROFEN [Concomitant]
     Indication: SWELLING
     Dosage: 400 MG, TID
     Dates: start: 20060616
  20. CHOLINE MAGNESIUM TRISALICYLATE [Concomitant]
     Dosage: 750 MG, PRN
     Route: 048
     Dates: start: 20060119
  21. CYCLOBENZAPRINE [Concomitant]
     Dosage: 10 MG, TID
     Route: 048
     Dates: start: 20060327
  22. YASMIN [Suspect]
     Indication: ACNE
     Dosage: UNK
     Route: 048
     Dates: start: 20040809, end: 20051015
  23. RELPAX [Concomitant]
     Indication: MIGRAINE
     Dosage: 40 MG, PRN
     Route: 048
     Dates: start: 20060321
  24. PROMETHAZINE [Concomitant]
     Dosage: 12.5 MG, QOH
     Route: 048
     Dates: start: 20060327
  25. LYRICA [Concomitant]
     Dosage: 50 MG, QD
     Route: 048
     Dates: start: 20060418
  26. METHYLPREDNISOLONE [Concomitant]
     Dosage: 4 MG, UNK
     Route: 048
     Dates: start: 20060327
  27. CLOTRIMAZOLE AND BETAMETHASONE DIPROPIONATE [Concomitant]
     Dosage: 45 G, BID
     Route: 061
     Dates: start: 20060403

REACTIONS (2)
  - DEEP VEIN THROMBOSIS [None]
  - THROMBOSIS [None]
